FAERS Safety Report 22088218 (Version 1)
Quarter: 2023Q1

REPORT INFORMATION
  Report Type: Spontaneous
  Country: US (occurrence: US)
  Receive Date: 20230313
  Receipt Date: 20230313
  Transmission Date: 20230418
  Serious: No
  Sender: FDA-Public Use
  Company Number: US-002147023-NVSC2023US054497

PATIENT

DRUGS (1)
  1. OXALIPLATIN [Suspect]
     Active Substance: OXALIPLATIN
     Indication: Product used for unknown indication
     Dosage: UNK
     Route: 065

REACTIONS (7)
  - Condition aggravated [Unknown]
  - Ocular hyperaemia [Unknown]
  - Rales [Unknown]
  - Nasal congestion [Unknown]
  - Dyspnoea [Unknown]
  - Cough [Unknown]
  - Flushing [Unknown]
